FAERS Safety Report 14686352 (Version 2)
Quarter: 2018Q1

REPORT INFORMATION
  Report Type: Report from Study
  Country: CA (occurrence: CA)
  Receive Date: 20180327
  Receipt Date: 20180330
  Transmission Date: 20180509
  Serious: Yes (Hospitalization, Other)
  Sender: FDA-Public Use
  Company Number: CA-GILEAD-2018-0327991

PATIENT
  Age: 61 Year
  Sex: Female

DRUGS (13)
  1. AZTREONAM LYSINE [Suspect]
     Active Substance: AZTREONAM LYSINE
     Indication: CYSTIC FIBROSIS
     Dosage: 75 MG, TID CONTINUOUS
     Route: 055
     Dates: start: 201705
  2. COLISTIN [Suspect]
     Active Substance: COLISTIN
     Indication: PRODUCT USED FOR UNKNOWN INDICATION
     Dosage: 150 MG, BID ALTERNATING WITH CAYSTON 28 DAYS
     Route: 055
     Dates: start: 201704
  3. PULMICORT TURBUHALER [Concomitant]
     Active Substance: BUDESONIDE
  4. VITAMIN D                          /00107901/ [Concomitant]
     Active Substance: ERGOCALCIFEROL
  5. VITAMIN E                          /00110501/ [Concomitant]
     Active Substance: TOCOPHEROL
  6. VITAMIN K [Concomitant]
     Active Substance: PHYTONADIONE
  7. ARIMIDEX [Concomitant]
     Active Substance: ANASTROZOLE
  8. LANSOPRAZOLE. [Concomitant]
     Active Substance: LANSOPRAZOLE
  9. DILTIAZEM. [Concomitant]
     Active Substance: DILTIAZEM
  10. PULMOZYME [Concomitant]
     Active Substance: DORNASE ALFA
  11. FRAGMIN [Concomitant]
     Active Substance: DALTEPARIN SODIUM
  12. OXEZE [Concomitant]
     Active Substance: FORMOTEROL FUMARATE
  13. TOBRAMYCIN. [Concomitant]
     Active Substance: TOBRAMYCIN
     Dosage: UNK
     Route: 055
     Dates: start: 201704

REACTIONS (2)
  - Condition aggravated [Not Recovered/Not Resolved]
  - Off label use [Not Recovered/Not Resolved]

NARRATIVE: CASE EVENT DATE: 20180307
